FAERS Safety Report 21192542 (Version 2)
Quarter: 2022Q4

REPORT INFORMATION
  Report Type: Report from Study
  Country: US (occurrence: US)
  Receive Date: 20220809
  Receipt Date: 20221010
  Transmission Date: 20230113
  Serious: Yes (Other)
  Sender: FDA-Public Use
  Company Number: US-ABBVIE-22K-163-4493782-00

PATIENT
  Age: 69 Year
  Sex: Female
  Weight: 57 kg

DRUGS (22)
  1. HUMIRA [Suspect]
     Active Substance: ADALIMUMAB
     Indication: Rheumatoid arthritis
     Route: 030
     Dates: start: 202209
  2. HUMIRA [Suspect]
     Active Substance: ADALIMUMAB
     Route: 030
     Dates: start: 2022, end: 202209
  3. HUMIRA [Suspect]
     Active Substance: ADALIMUMAB
     Route: 030
     Dates: start: 2019, end: 202112
  4. METOPROLOL [Concomitant]
     Active Substance: METOPROLOL
     Indication: Product used for unknown indication
     Dosage: 50 MILLIGRAM
     Route: 065
  5. RINVOQ [Suspect]
     Active Substance: UPADACITINIB
     Indication: Rheumatoid arthritis
     Route: 048
  6. LASIX [Concomitant]
     Active Substance: FUROSEMIDE
     Indication: Product used for unknown indication
     Dosage: 20 MILLIGRAM
     Route: 065
  7. POTASSIUM CHLORIDE [Concomitant]
     Active Substance: POTASSIUM CHLORIDE
     Indication: Product used for unknown indication
  8. CELEXA [Concomitant]
     Active Substance: CITALOPRAM HYDROBROMIDE
     Indication: Depression
     Dosage: 60 MILLIGRAM
     Route: 065
  9. HYDROCORTISONE [Concomitant]
     Active Substance: HYDROCORTISONE
     Indication: Adrenal insufficiency
     Dosage: 5 MILLIGRAM
     Route: 065
  10. CIMETIDINE [Concomitant]
     Active Substance: CIMETIDINE
     Indication: Product used for unknown indication
     Dosage: 20 MILLIGRAM
     Route: 065
  11. FIORICET [Concomitant]
     Active Substance: ACETAMINOPHEN\BUTALBITAL\CAFFEINE
     Indication: Migraine
     Route: 065
  12. FLAXSEED [Concomitant]
     Active Substance: FLAX SEED
     Indication: Product used for unknown indication
     Route: 065
  13. VENTOLIN [Concomitant]
     Active Substance: ALBUTEROL SULFATE
     Indication: Product used for unknown indication
     Route: 065
  14. LEVOTHYROXINE [Concomitant]
     Active Substance: LEVOTHYROXINE
     Indication: Hypothyroidism
     Dosage: 60 MILLIGRAM
     Route: 065
  15. SPIRIVA [Concomitant]
     Active Substance: TIOTROPIUM BROMIDE MONOHYDRATE
     Indication: Product used for unknown indication
     Route: 065
  16. GABAPENTIN [Concomitant]
     Active Substance: GABAPENTIN
     Indication: Product used for unknown indication
     Dosage: 10 MILLIGRAM
     Route: 065
  17. OMEPRAZOLE [Concomitant]
     Active Substance: OMEPRAZOLE
     Indication: Product used for unknown indication
     Dosage: 20 MILLIGRAM
     Route: 065
  18. XANAX [Concomitant]
     Active Substance: ALPRAZOLAM
     Indication: Anxiety
     Route: 065
  19. PFIZER-BIONTECH COVID-19 VACCINE [Concomitant]
     Active Substance: TOZINAMERAN
     Indication: COVID-19 immunisation
     Dosage: FREQUENCY -1-1-ONCE
     Route: 030
     Dates: start: 20220516, end: 20220516
  20. PFIZER-BIONTECH COVID-19 VACCINE [Concomitant]
     Active Substance: TOZINAMERAN
     Indication: COVID-19 immunisation
     Dosage: FREQUENCY-1-1-ONCE
     Route: 030
     Dates: start: 20211118, end: 20211118
  21. ADDERALL [Concomitant]
     Active Substance: AMPHETAMINE ASPARTATE\AMPHETAMINE SULFATE\DEXTROAMPHETAMINE SACCHARATE\DEXTROAMPHETAMINE SULFATE
     Indication: Product used for unknown indication
     Route: 065
  22. JANSSEN COVID-19 VACCINE [Concomitant]
     Active Substance: AD26.COV2.S
     Indication: COVID-19 immunisation
     Dosage: FREQUENCY-1-1-ONCE
     Route: 030
     Dates: start: 20210307, end: 20210307

REACTIONS (9)
  - Lymphoedema [Not Recovered/Not Resolved]
  - Joint injury [Recovering/Resolving]
  - Arthritis [Unknown]
  - Arthralgia [Recovered/Resolved]
  - Illness [Not Recovered/Not Resolved]
  - Mobility decreased [Recovered/Resolved]
  - Depression [Not Recovered/Not Resolved]
  - Swelling [Recovering/Resolving]
  - Loss of personal independence in daily activities [Recovered/Resolved]

NARRATIVE: CASE EVENT DATE: 20220901
